FAERS Safety Report 8467487 (Version 4)
Quarter: 2012Q4

REPORT INFORMATION
  Report Type: 
  Country: SE (occurrence: SE)
  Receive Date: 20120320
  Receipt Date: 20121210
  Transmission Date: 20130627
  Serious: Yes (Other)
  Sender: FDA-Public Use
  Company Number: PHHY2012SE022836

PATIENT
  Age: 53 Year
  Sex: Male

DRUGS (7)
  1. CLOZAPINE [Suspect]
     Route: 048
  2. LEPONEX [Suspect]
  3. CLOZAPINE ACTAVIS [Suspect]
  4. METOPROLOL SANDOZ [Concomitant]
  5. TROMBYL [Concomitant]
  6. TEMESTA [Concomitant]
  7. CITALOPRAM [Concomitant]

REACTIONS (7)
  - Catatonia [Not Recovered/Not Resolved]
  - Musculoskeletal stiffness [Not Recovered/Not Resolved]
  - Blood pressure increased [Not Recovered/Not Resolved]
  - Heart rate increased [Not Recovered/Not Resolved]
  - Cold sweat [Unknown]
  - Fatigue [Not Recovered/Not Resolved]
  - Somnolence [Unknown]
